FAERS Safety Report 15813558 (Version 1)
Quarter: 2019Q1

REPORT INFORMATION
  Report Type: Spontaneous
  Country: US (occurrence: US)
  Receive Date: 20190111
  Receipt Date: 20190111
  Transmission Date: 20190417
  Serious: Yes (Other)
  Sender: FDA-Public Use
  Company Number: None

PATIENT
  Age: 34 Year
  Sex: Male
  Weight: 87.75 kg

DRUGS (2)
  1. DULOXETINE. [Suspect]
     Active Substance: DULOXETINE
     Indication: MAJOR DEPRESSION
     Dosage: ?          QUANTITY:1 CAPSULE(S);?
     Route: 048
     Dates: start: 20180301, end: 20190105
  2. ENSURE [Concomitant]
     Active Substance: AMINO ACIDS\DEXTROSE\ELECTROLYTES NOS\SOYBEAN OIL\VITAMINS

REACTIONS (13)
  - Dizziness [None]
  - Loss of consciousness [None]
  - Paraesthesia [None]
  - Nausea [None]
  - Vomiting [None]
  - Headache [None]
  - Withdrawal syndrome [None]
  - Fatigue [None]
  - Insomnia [None]
  - Chills [None]
  - Lethargy [None]
  - Hyperhidrosis [None]
  - Temperature intolerance [None]

NARRATIVE: CASE EVENT DATE: 20190106
